FAERS Safety Report 14870410 (Version 1)
Quarter: 2018Q2

REPORT INFORMATION
  Report Type: Spontaneous
  Country: US (occurrence: PK)
  Receive Date: 20180509
  Receipt Date: 20180509
  Transmission Date: 20180711
  Serious: Yes (Death)
  Sender: FDA-Public Use
  Company Number: PK-STI PHARMA LLC-2047479

PATIENT
  Age: 31 Year
  Sex: Male
  Weight: 35 kg

DRUGS (1)
  1. ETHAMBUTOL HYDROCHLORIDE. [Suspect]
     Active Substance: ETHAMBUTOL HYDROCHLORIDE
     Route: 048
     Dates: start: 20170707

REACTIONS (2)
  - Anaemia [Not Recovered/Not Resolved]
  - Gastroenteritis [Fatal]
